FAERS Safety Report 18009028 (Version 1)
Quarter: 2020Q3

REPORT INFORMATION
  Report Type: Spontaneous
  Country: US (occurrence: US)
  Receive Date: 20200710
  Receipt Date: 20200710
  Transmission Date: 20201103
  Serious: Yes (Hospitalization)
  Sender: FDA-Public Use
  Company Number: US-SAOL THERAPEUTICS-2019SAO00428

PATIENT
  Age: 52 Year
  Sex: Male

DRUGS (4)
  1. LIORESAL [Suspect]
     Active Substance: BACLOFEN
     Dosage: 265 ?G, \DAY
     Route: 037
     Dates: start: 20191011, end: 201910
  2. LIORESAL [Suspect]
     Active Substance: BACLOFEN
     Dosage: 530 ?G, \DAY
     Route: 037
     Dates: end: 20191011
  3. LIORESAL [Suspect]
     Active Substance: BACLOFEN
     Dosage: 583 ?G, \DAY
     Route: 037
     Dates: start: 201910
  4. LIORESAL [Suspect]
     Active Substance: BACLOFEN
     Dosage: DOSE WAS TITRATED UP TO THERAPEUTIC EFFICACY
     Route: 037
     Dates: start: 201910, end: 201910

REACTIONS (2)
  - Underdose [Recovered/Resolved]
  - Complication associated with device [Recovered/Resolved]

NARRATIVE: CASE EVENT DATE: 2019
